FAERS Safety Report 5638867-1 (Version None)
Quarter: 2008Q1

REPORT INFORMATION
  Report Type: 
  Country: None (occurrence: None)
  Receive Date: 20080222
  Receipt Date: 20080213
  Transmission Date: 20080703
  Serious: Yes (Hospitalization)
  Sender: FDA-Public Use
  Company Number: 100#03#2008-00875

PATIENT
  Age: 54 Year
  Sex: Female

DRUGS (1)
  1. CITALOPRAM HYDROBROMIDE [Suspect]
     Indication: DRUG USE FOR UNKNOWN INDICATION
     Dosage: 20 MG ONCE DAILY ORAL
     Route: 048
     Dates: start: 20071218

REACTIONS (3)
  - DYSPHAGIA [None]
  - SYNCOPE VASOVAGAL [None]
  - TACHYCARDIA [None]
